FAERS Safety Report 20637169 (Version 1)
Quarter: 2022Q1

REPORT INFORMATION
  Report Type: Spontaneous
  Country: US (occurrence: US)
  Receive Date: 20220325
  Receipt Date: 20220325
  Transmission Date: 20220423
  Serious: No
  Sender: FDA-Public Use
  Company Number: US-PFIZER INC-202200452807

PATIENT
  Age: 61 Year
  Sex: Female

DRUGS (2)
  1. XELJANZ XR [Suspect]
     Active Substance: TOFACITINIB CITRATE
     Indication: Rheumatoid arthritis
     Dosage: 11 MG, DAILY
     Route: 048
     Dates: start: 202103, end: 202203
  2. XELJANZ XR [Suspect]
     Active Substance: TOFACITINIB CITRATE
     Dosage: EVERY OTHER DAY
     Route: 048
     Dates: start: 20220303

REACTIONS (7)
  - Drug ineffective [Unknown]
  - Off label use [Unknown]
  - Dry mouth [Recovering/Resolving]
  - Aphthous ulcer [Recovering/Resolving]
  - Chapped lips [Recovering/Resolving]
  - Functional gastrointestinal disorder [Recovering/Resolving]
  - Gastrointestinal disorder [Recovering/Resolving]
